FAERS Safety Report 13798223 (Version 1)
Quarter: 2017Q3

REPORT INFORMATION
  Report Type: Spontaneous
  Country: US (occurrence: US)
  Receive Date: 20170726
  Receipt Date: 20170726
  Transmission Date: 20171127
  Serious: Yes (Hospitalization)
  Sender: FDA-Public Use
  Company Number: None

PATIENT
  Age: 47 Year
  Sex: Male
  Weight: 97.75 kg

DRUGS (3)
  1. LITHIUM. [Suspect]
     Active Substance: LITHIUM
     Indication: BIPOLAR DISORDER
     Route: 048
     Dates: start: 20170405, end: 20170704
  2. LITHIUM. [Suspect]
     Active Substance: LITHIUM
     Indication: MANIA
     Route: 048
     Dates: start: 20170405, end: 20170704
  3. LITHIUM. [Suspect]
     Active Substance: LITHIUM
     Indication: SCHIZOAFFECTIVE DISORDER
     Route: 048
     Dates: start: 20170405, end: 20170704

REACTIONS (8)
  - Dehydration [None]
  - Toxicity to various agents [None]
  - Hypothyroidism [None]
  - Creatinine renal clearance decreased [None]
  - Acute kidney injury [None]
  - Nausea [None]
  - Vomiting [None]
  - Diarrhoea [None]

NARRATIVE: CASE EVENT DATE: 20170704
